FAERS Safety Report 14240765 (Version 1)
Quarter: 2017Q4

REPORT INFORMATION
  Report Type: Report from Study
  Country: DE (occurrence: DE)
  Receive Date: 20171130
  Receipt Date: 20171130
  Transmission Date: 20180321
  Serious: Yes (Other)
  Sender: FDA-Public Use
  Company Number: DE-GILEAD-2017-0307224

PATIENT
  Age: 60 Year
  Sex: Male
  Weight: 71 kg

DRUGS (11)
  1. SANDIMMUN OPTORAL [Concomitant]
     Active Substance: CYCLOSPORINE
     Dosage: 25 MG, UNK
  2. TORASEMID [Concomitant]
     Active Substance: TORSEMIDE
     Dosage: 10 (UNITS NOT PROVIDED)
  3. RAMIPRIL. [Concomitant]
     Active Substance: RAMIPRIL
     Dosage: 5 (UNITS NOT PROVIDED)
  4. VIGANTOLETTEN [Concomitant]
     Active Substance: CHOLECALCIFEROL
     Dosage: 1000 (UNITS NOT PROVIDED)
  5. XIFAXAN [Concomitant]
     Active Substance: RIFAXIMIN
     Dosage: UNK
  6. OLYSIO [Concomitant]
     Active Substance: SIMEPREVIR
     Indication: CHRONIC HEPATITIS C
     Dosage: 150 MG, QD
     Route: 048
     Dates: start: 20140728, end: 20141020
  7. PANTOPRAZOL                        /01263201/ [Concomitant]
     Dosage: 40 MG, UNK
  8. SOFOSBUVIR [Suspect]
     Active Substance: SOFOSBUVIR
     Indication: CHRONIC HEPATITIS C
     Dosage: 400 MG, QD
     Route: 065
     Dates: start: 20140728, end: 20141020
  9. VORICONAZOLE. [Concomitant]
     Active Substance: VORICONAZOLE
     Dosage: 200 MG, UNK
  10. MAGNESIUM VERLA                    /00648601/ [Concomitant]
     Active Substance: MAGNESIUM
     Dosage: UNK
  11. UDC [Concomitant]
     Dosage: UNK

REACTIONS (1)
  - Abdominal pain upper [Recovering/Resolving]
